FAERS Safety Report 19646271 (Version 1)
Quarter: 2021Q3

REPORT INFORMATION
  Report Type: Spontaneous
  Country: CA (occurrence: CA)
  Receive Date: 20210802
  Receipt Date: 20210802
  Transmission Date: 20211014
  Serious: Yes (Disabling, Other)
  Sender: FDA-Public Use
  Company Number: CA-ACCORD-234070

PATIENT
  Age: 27 Year
  Sex: Male

DRUGS (4)
  1. AZATHIOPRINE/AZATHIOPRINE SODIUM [Concomitant]
     Active Substance: AZATHIOPRINE
  2. HYDROXYCHLOROQUINE [Suspect]
     Active Substance: HYDROXYCHLOROQUINE
     Indication: LUPUS NEPHRITIS
     Route: 048
  3. ENALAPRIL/ENALAPRIL MALEATE [Concomitant]
     Active Substance: ENALAPRIL MALEATE
  4. PREDNISONE/PREDNISONE ACETATE [Concomitant]
     Active Substance: PREDNISONE ACETATE

REACTIONS (5)
  - Off label use [Unknown]
  - Ventricular hypokinesia [Unknown]
  - Atrial fibrillation [Unknown]
  - Cardiomyopathy [Unknown]
  - Ejection fraction abnormal [Unknown]
